FAERS Safety Report 10232069 (Version 1)
Quarter: 2014Q2

REPORT INFORMATION
  Report Type: Spontaneous
  Country: US (occurrence: US)
  Receive Date: 20140612
  Receipt Date: 20140612
  Transmission Date: 20141212
  Serious: No
  Sender: FDA-Public Use
  Company Number: US-009507513-1406USA003502

PATIENT
  Age: 51 Year
  Sex: Female

DRUGS (2)
  1. JANUMET [Suspect]
     Indication: TYPE 2 DIABETES MELLITUS
     Dosage: 50/1000MG, FREQUENCY UNSPECIFIED
     Route: 048
  2. LANTUS [Concomitant]
     Dosage: UNK

REACTIONS (1)
  - Rash [Unknown]
